FAERS Safety Report 21328160 (Version 1)
Quarter: 2022Q3

REPORT INFORMATION
  Report Type: Spontaneous
  Country: GR (occurrence: GR)
  Receive Date: 20220913
  Receipt Date: 20220913
  Transmission Date: 20221026
  Serious: Yes (Other)
  Sender: FDA-Public Use
  Company Number: GR-CELLTRION INC.-2022GR014688

PATIENT

DRUGS (2)
  1. INFLIXIMAB [Suspect]
     Active Substance: INFLIXIMAB
     Indication: Crohn^s disease
     Dosage: 5X100MG/EVERY 8 WEEKS
     Route: 042
     Dates: start: 20220902
  2. INFLIXIMAB [Suspect]
     Active Substance: INFLIXIMAB
     Dosage: 5X100MG/EVERY 8 WEEKS
     Route: 042

REACTIONS (2)
  - Hypersensitivity [Unknown]
  - Overdose [Unknown]

NARRATIVE: CASE EVENT DATE: 20220902
